FAERS Safety Report 13467316 (Version 1)
Quarter: 2017Q2

REPORT INFORMATION
  Report Type: Spontaneous
  Country: US (occurrence: US)
  Receive Date: 20170420
  Receipt Date: 20170420
  Transmission Date: 20170830
  Serious: Yes (Life-Threatening)
  Sender: FDA-Public Use
  Company Number: None

PATIENT
  Age: 86 Year
  Sex: Male
  Weight: 71.67 kg

DRUGS (1)
  1. DIGOXIN. [Suspect]
     Active Substance: DIGOXIN
     Indication: CARDIAC FAILURE CONGESTIVE
     Dates: start: 20170130, end: 20170131

REACTIONS (6)
  - Tachycardia [None]
  - Electrocardiogram change [None]
  - Hypotension [None]
  - Syncope [None]
  - Hyperkalaemia [None]
  - Toxicity to various agents [None]

NARRATIVE: CASE EVENT DATE: 20170131
